FAERS Safety Report 8359476-X (Version None)
Quarter: 2012Q2

REPORT INFORMATION
  Report Type: 
  Country: None (occurrence: None)
  Receive Date: 20120515
  Receipt Date: 20120501
  Transmission Date: 20120825
  Serious: Yes (Hospitalization)
  Sender: FDA-Public Use
  Company Number: US-ELI_LILLY_AND_COMPANY-US201201000882

PATIENT
  Sex: Female

DRUGS (2)
  1. PREDNISONE [Concomitant]
  2. HUMATROPE [Suspect]
     Indication: PITUITARY TUMOUR
     Dosage: 0.2 DF, UNK
     Dates: start: 20010101

REACTIONS (12)
  - CARDIAC DISORDER [None]
  - PNEUMONIA [None]
  - DRUG DOSE OMISSION [None]
  - PANIC REACTION [None]
  - CARDIAC FAILURE CONGESTIVE [None]
  - MALAISE [None]
  - CATARACT [None]
  - MEMORY IMPAIRMENT [None]
  - VISUAL ACUITY REDUCED [None]
  - DEPRESSED MOOD [None]
  - PSEUDOEXFOLIATION OF LENS CAPSULE [None]
  - FATIGUE [None]
